FAERS Safety Report 8193874-2 (Version None)
Quarter: 2012Q1

REPORT INFORMATION
  Report Type: 
  Country: None (occurrence: None)
  Receive Date: 20120308
  Receipt Date: 20120228
  Transmission Date: 20120608
  Serious: Yes (Hospitalization)
  Sender: FDA-Public Use
  Company Number: FR-JNJFOC-20120301750

PATIENT
  Sex: Male

DRUGS (4)
  1. LORAZEPAM [Concomitant]
     Indication: ANXIETY
     Dates: start: 20120201, end: 20120203
  2. PALIPERIDONE PALMITATE [Suspect]
     Indication: SCHIZOPHRENIA
     Dates: start: 20110923
  3. LORAZEPAM [Concomitant]
     Indication: PSYCHOTIC DISORDER
     Dates: start: 20111031, end: 20120202
  4. LEPTICUR [Concomitant]
     Indication: DYSKINESIA
     Dates: start: 20111114, end: 20111118

REACTIONS (1)
  - ANXIETY [None]
